FAERS Safety Report 9548742 (Version 1)
Quarter: 2013Q3

REPORT INFORMATION
  Report Type: Spontaneous
  Country: ES (occurrence: None)
  Receive Date: 20130919
  Receipt Date: 20130919
  Transmission Date: 20140515
  Serious: Yes (Hospitalization)
  Sender: FDA-Public Use
  Company Number: 2013P1019184

PATIENT
  Age: 78 Year
  Sex: Female

DRUGS (4)
  1. CLINDAMYCIN [Suspect]
     Indication: HIP ARTHROPLASTY
  2. CLINDAMYCIN [Suspect]
     Indication: POSTOPERATIVE ABSCESS
  3. LEVOFLOXACIN [Suspect]
     Indication: HIP ARTHROPLASTY
  4. LEVOFLOXACIN [Suspect]
     Indication: POSTOPERATIVE ABSCESS

REACTIONS (1)
  - Acute generalised exanthematous pustulosis [None]
